FAERS Safety Report 14114118 (Version 1)
Quarter: 2017Q4

REPORT INFORMATION
  Report Type: Spontaneous
  Country: DE (occurrence: DE)
  Receive Date: 20171023
  Receipt Date: 20171023
  Transmission Date: 20180321
  Serious: Yes (Death, Other)
  Sender: FDA-Public Use
  Company Number: DE-SUN PHARMACEUTICAL INDUSTRIES LTD-2017RR-152536

PATIENT
  Sex: Male

DRUGS (1)
  1. CIPROFLOXACIN. [Suspect]
     Active Substance: CIPROFLOXACIN
     Indication: DERMAL CYST
     Dosage: UNK
     Route: 065

REACTIONS (13)
  - Headache [Unknown]
  - Nightmare [Unknown]
  - Lymphoma [Fatal]
  - Chills [Unknown]
  - Tachycardia [Unknown]
  - Lymphadenopathy [Unknown]
  - Pyrexia [Unknown]
  - Panic reaction [Unknown]
  - Depression [Unknown]
  - Leukocytosis [Unknown]
  - Flushing [Unknown]
  - White blood cell count increased [Unknown]
  - Dizziness [Unknown]
